FAERS Safety Report 15471928 (Version 3)
Quarter: 2018Q4

REPORT INFORMATION
  Report Type: Report from Study
  Country: GB (occurrence: GB)
  Receive Date: 20181008
  Receipt Date: 20181217
  Transmission Date: 20190205
  Serious: Yes (Hospitalization)
  Sender: FDA-Public Use
  Company Number: GB-IPSEN BIOPHARMACEUTICALS, INC.-2018-14334

PATIENT
  Sex: Male

DRUGS (12)
  1. SOMATULINE AUTOGEL 120MG [Suspect]
     Active Substance: LANREOTIDE ACETATE
     Indication: NEUROENDOCRINE TUMOUR
  2. SOMATULINE AUTOGEL 120MG [Suspect]
     Active Substance: LANREOTIDE ACETATE
     Indication: PANCREATIC CARCINOMA
     Route: 058
     Dates: start: 2018
  3. SIMVASTATIN. [Concomitant]
     Active Substance: SIMVASTATIN
  4. CREON [Concomitant]
     Active Substance: PANCRELIPASE AMYLASE\PANCRELIPASE LIPASE\PANCRELIPASE PROTEASE
     Dosage: TOTAL DAILY DOSE: 25000 (UNITS NOT REPORTED)
  5. MIRTAZAPINE. [Concomitant]
     Active Substance: MIRTAZAPINE
  6. LANTUS [Concomitant]
     Active Substance: INSULIN GLARGINE
  7. OMEPRAZOLE. [Concomitant]
     Active Substance: OMEPRAZOLE
  8. SITAGLIPTIN [Concomitant]
     Active Substance: SITAGLIPTIN
  9. ASPIRIN. [Concomitant]
     Active Substance: ASPIRIN
  10. BISOPROLOL [Concomitant]
     Active Substance: BISOPROLOL
  11. SOMATULINE AUTOGEL 120MG [Suspect]
     Active Substance: LANREOTIDE ACETATE
     Indication: OFF LABEL USE
  12. MONOMIL [Concomitant]
     Active Substance: ISOSORBIDE MONONITRATE

REACTIONS (7)
  - Appetite disorder [Unknown]
  - Weight increased [Unknown]
  - Procedural anxiety [Unknown]
  - Vomiting [Unknown]
  - Diarrhoea [Unknown]
  - Abdominal discomfort [Unknown]
  - Product use in unapproved indication [Unknown]
